FAERS Safety Report 14494954 (Version 1)
Quarter: 2018Q1

REPORT INFORMATION
  Report Type: Report from Study
  Country: DE (occurrence: DE)
  Receive Date: 20180206
  Receipt Date: 20180206
  Transmission Date: 20180509
  Serious: Yes (Other)
  Sender: FDA-Public Use
  Company Number: DE-GLAXOSMITHKLINE-DE2018GSK019333

PATIENT

DRUGS (1)
  1. BELIMUMAB [Suspect]
     Active Substance: BELIMUMAB
     Indication: SYSTEMIC LUPUS ERYTHEMATOSUS
     Dosage: UNK
     Dates: end: 201709

REACTIONS (5)
  - Central nervous system lupus [Unknown]
  - SLE arthritis [Unknown]
  - Lupus pneumonitis [Unknown]
  - Product use issue [Unknown]
  - Systemic lupus erythematosus [Unknown]
